FAERS Safety Report 17199149 (Version 4)
Quarter: 2020Q1

REPORT INFORMATION
  Report Type: Report from Study
  Country: None (occurrence: FR)
  Receive Date: 20191225
  Receipt Date: 20200217
  Transmission Date: 20200409
  Serious: Yes (Hospitalization, Disabling, Other)
  Sender: FDA-Public Use
  Company Number: FR-ABBVIE-19P-056-2799223-00

PATIENT
  Age: 18 Year
  Sex: Male
  Weight: 55.3 kg

DRUGS (4)
  1. ENTOCORT [Concomitant]
     Active Substance: BUDESONIDE
     Indication: CROHN^S DISEASE
     Route: 048
     Dates: start: 20170727, end: 20170815
  2. ENTOCORT [Concomitant]
     Active Substance: BUDESONIDE
     Route: 048
     Dates: start: 20181023, end: 20181029
  3. AZATHIOPRINE. [Suspect]
     Active Substance: AZATHIOPRINE
     Indication: CROHN^S DISEASE
     Route: 048
     Dates: start: 20181023, end: 20181029
  4. HUMIRA [Suspect]
     Active Substance: ADALIMUMAB
     Indication: CROHN^S DISEASE
     Route: 058
     Dates: start: 20171006, end: 20181021

REACTIONS (2)
  - Abdominal abscess [Recovered/Resolved]
  - Ileal stenosis [Recovered/Resolved]

NARRATIVE: CASE EVENT DATE: 20181008
